FAERS Safety Report 4889120-5 (Version None)
Quarter: 2005Q4

REPORT INFORMATION
  Report Type: 
  Country: None (occurrence: None)
  Receive Date: 20051215
  Receipt Date: 20041213
  Transmission Date: 20060501
  Serious: Yes (Other)
  Sender: FDA-Public Use
  Company Number: 2004096979

PATIENT
  Age: 76 Year
  Sex: Female

DRUGS (8)
  1. BEXTRA [Suspect]
     Indication: BACK PAIN
     Dosage: 20 MG (20 MG, 1 IN1 D), ORAL
     Route: 048
     Dates: start: 20040601, end: 20041101
  2. CELECOXIB (CELECOXIB) [Concomitant]
  3. ACETAMINOPHEN [Concomitant]
  4. PAROXETINE HCL [Concomitant]
  5. FENTANYL [Concomitant]
  6. RALOXIFENE HCL [Concomitant]
  7. NIFEDIPINE [Concomitant]
  8. BISOPROLOL FUMARATE AND HYDROCHLOROTHIAZIDE [Concomitant]

REACTIONS (1)
  - GASTROINTESTINAL HAEMORRHAGE [None]
